FAERS Safety Report 18617021 (Version 2)
Quarter: 2021Q1

REPORT INFORMATION
  Report Type: Other
  Country: US (occurrence: US)
  Receive Date: 20201215
  Receipt Date: 20210108
  Transmission Date: 20210419
  Serious: No
  Sender: FDA-Public Use
  Company Number: US-ROCHE-2733136

PATIENT
  Sex: Female

DRUGS (3)
  1. OCREVUS [Suspect]
     Active Substance: OCRELIZUMAB
     Indication: RELAPSING MULTIPLE SCLEROSIS
     Dosage: PRESCRIBED: INFUSE 300 MG DAY 1 AND DAY 15, THEN INFUSE 600 MG EVERY 6 MONTHS
     Route: 042
     Dates: start: 20201113
  2. TOPAMAX [Concomitant]
     Active Substance: TOPIRAMATE
  3. BACLOFEN. [Concomitant]
     Active Substance: BACLOFEN

REACTIONS (1)
  - COVID-19 [Unknown]
